FAERS Safety Report 7795725-4 (Version None)
Quarter: 2011Q4

REPORT INFORMATION
  Report Type: 
  Country: None (occurrence: None)
  Receive Date: 20111004
  Receipt Date: 20110930
  Transmission Date: 20120403
  Serious: Yes (Death)
  Sender: FDA-Public Use
  Company Number: AU-B.I. PHARMACEUTICALS,INC./RIDGEFIELD-2011-AU-01401AU

PATIENT
  Sex: Female

DRUGS (11)
  1. PHYSIOTENS [Concomitant]
     Dosage: 0.2 MG
  2. NOTEN [Concomitant]
     Dosage: 100 MG
  3. SEREPAX [Concomitant]
     Dosage: ONE BEFORE BED PRN
  4. ZAN EXTRA [Concomitant]
     Dosage: 10/20 ONCE DAILY
  5. PRADAXA [Suspect]
     Indication: ATRIAL FIBRILLATION
     Dosage: 220 MG
     Dates: start: 20110815, end: 20110914
  6. KARVEA [Concomitant]
     Dosage: 300 MG
  7. NEXIUM [Concomitant]
  8. SYMBICORT [Concomitant]
     Dosage: 400MCG/12MCG/ DOSE TURBOHALER ONE BD
  9. CRESTOR [Concomitant]
     Dosage: 20 MG
  10. FOSAMAX PLUS D-CAL [Concomitant]
     Dosage: 70 MG; 140 MCG; 500 MG ONCE DAILY
  11. MIRTAZAPINE [Concomitant]
     Dosage: 2 BEFORE BED AFTER MEALS

REACTIONS (4)
  - NAUSEA [None]
  - HAEMATOMA INFECTION [None]
  - LETHARGY [None]
  - DEATH [None]
